FAERS Safety Report 23839174 (Version 3)
Quarter: 2024Q2

REPORT INFORMATION
  Report Type: Report from Study
  Country: CA (occurrence: CA)
  Receive Date: 20240509
  Receipt Date: 20240605
  Transmission Date: 20240715
  Serious: Yes (Hospitalization, Other)
  Sender: FDA-Public Use
  Company Number: CA-SA-SAC20231005000173

PATIENT
  Age: 78 Year
  Sex: Male

DRUGS (23)
  1. BELUMOSUDIL MESYLATE [Suspect]
     Active Substance: BELUMOSUDIL MESYLATE
     Indication: Chronic graft versus host disease
     Dosage: 200 MG, QD
     Route: 048
     Dates: start: 20230902, end: 20240110
  2. PREDNISONE [Concomitant]
     Active Substance: PREDNISONE
     Dosage: 8 MG, QD
  3. PREDNISONE [Concomitant]
     Active Substance: PREDNISONE
     Dosage: 15 MG, QD IN AM ONLY
  4. URSODIOL [Concomitant]
     Active Substance: URSODIOL
     Dosage: 250 MG, BID, AM AND PM MEALS
  5. URSODIOL [Concomitant]
     Active Substance: URSODIOL
     Dosage: 2X/DAY; AM AND PM MEALS
  6. CYCLOSPORINE [Concomitant]
     Active Substance: CYCLOSPORINE
     Dosage: 50 MG, BID
  7. CYCLOSPORINE [Concomitant]
     Active Substance: CYCLOSPORINE
     Dosage: 2 X / DAY
  8. VALACYCLOVIR [Concomitant]
     Active Substance: VALACYCLOVIR HYDROCHLORIDE
     Dosage: 500 MG, QD
  9. MYCOPHENOLATE MOFETIL [Concomitant]
     Active Substance: MYCOPHENOLATE MOFETIL
     Dosage: UNK, BID (500 MG MORNING; 250 MG EVENING)
  10. BISOPROLOL [Concomitant]
     Active Substance: BISOPROLOL\BISOPROLOL FUMARATE
     Dosage: 2.5 MG, QD
  11. CANDESARTAN [Concomitant]
     Active Substance: CANDESARTAN
     Dosage: 2 MG, QD
  12. EZETIMIBE [Concomitant]
     Active Substance: EZETIMIBE
     Dosage: 5 MG, QD
  13. EZETIMIBE [Concomitant]
     Active Substance: EZETIMIBE
     Dosage: 2 MG, QD
  14. HUMULIN 70/30 [Concomitant]
     Active Substance: INSULIN HUMAN
     Dosage: 10 U, QD
  15. NOVORAPID [Concomitant]
     Active Substance: INSULIN ASPART
     Dosage: UNK, PRN (AS REQUIRED ? USUALLY 6-10 UNITS)
  16. IVIGLOB EX [Concomitant]
     Active Substance: HUMAN IMMUNOGLOBULIN G
     Dosage: UNK, QM
  17. GOSERELIN [Concomitant]
     Active Substance: GOSERELIN
     Dosage: UNK, REGULAR 3 MONTH INJECTION
  18. PRALUENT [Concomitant]
     Active Substance: ALIROCUMAB
     Dosage: 150 MG, QOW
  19. CYANOCOBALAMIN [Concomitant]
     Active Substance: CYANOCOBALAMIN
     Dosage: UNK
  20. VITAMIN D3 [Concomitant]
     Active Substance: CHOLECALCIFEROL
     Dosage: UNK
  21. ASPIRIN [Concomitant]
     Active Substance: ASPIRIN
     Dosage: 81 MG, QD
  22. .ALPHA.-TOCOPHEROL\FISH OIL [Concomitant]
     Active Substance: .ALPHA.-TOCOPHEROL\FISH OIL
     Dosage: 1250 MG, BID
  23. ABIRATERONE [Concomitant]
     Active Substance: ABIRATERONE
     Dosage: UNK

REACTIONS (9)
  - Streptococcal bacteraemia [Recovering/Resolving]
  - Haematological infection [Recovered/Resolved]
  - Gait disturbance [Unknown]
  - Asthenia [Recovering/Resolving]
  - Musculoskeletal chest pain [Recovered/Resolved]
  - Nasopharyngitis [Recovered/Resolved]
  - Fatigue [Recovering/Resolving]
  - Dyspnoea [Recovering/Resolving]
  - Drug ineffective [Unknown]

NARRATIVE: CASE EVENT DATE: 20230101
